FAERS Safety Report 4826207-7 (Version None)
Quarter: 2005Q4

REPORT INFORMATION
  Report Type: 
  Country: None (occurrence: None)
  Receive Date: 20051109
  Receipt Date: 20051028
  Transmission Date: 20060501
  Serious: Yes (Other)
  Sender: FDA-Public Use
  Company Number: KII-2005-0019378

PATIENT
  Age: 35 Year
  Sex: Female

DRUGS (1)
  1. OXYCONTIN [Suspect]
     Indication: ACCIDENTAL EXPOSURE
     Dosage: SEE TEXT, ORAL
     Route: 048

REACTIONS (6)
  - ACCIDENTAL EXPOSURE [None]
  - CONSCIOUSNESS FLUCTUATING [None]
  - EYE ROLLING [None]
  - MEDICATION ERROR [None]
  - RESPIRATION ABNORMAL [None]
  - VOMITING [None]
